FAERS Safety Report 9371080 (Version 1)
Quarter: 2013Q2

REPORT INFORMATION
  Report Type: Report from Study
  Country: US (occurrence: US)
  Receive Date: 20130627
  Receipt Date: 20130627
  Transmission Date: 20140414
  Serious: Yes (Hospitalization)
  Sender: FDA-Public Use
  Company Number: US-ROCHE-1237355

PATIENT
  Sex: 0

DRUGS (3)
  1. PEG-INTERFERON ALFA 2A [Suspect]
     Indication: CHRONIC HEPATITIS C
     Dosage: MOST RECENT DOSE: 180MCG ?MOST RECENT DOSE OF PEG-INTERFERON ALFA 2A: //2012
     Route: 065
     Dates: start: 20120519
  2. RIBAVIRIN [Suspect]
     Indication: CHRONIC HEPATITIS C
     Dosage: MOST RECENT DOSE: 200MCG ?MOST RECENT DOSE OF PEG-INTERFERON ALFA 2A: //2012
     Route: 065
     Dates: start: 20120519
  3. TELAPREVIR [Suspect]
     Indication: CHRONIC HEPATITIS C
     Dosage: MOST RECENT DOSE: 2250MCG ?MOST RECENT DOSE OF PEG-INTERFERON ALFA 2A: 01/AUG/2012.
     Route: 065
     Dates: start: 20120518

REACTIONS (4)
  - Hyperkalaemia [Recovered/Resolved]
  - Nausea [Recovered/Resolved]
  - Vomiting [Unknown]
  - Diarrhoea [Unknown]
